FAERS Safety Report 22000527 (Version 2)
Quarter: 2023Q2

REPORT INFORMATION
  Report Type: Spontaneous
  Country: US (occurrence: US)
  Receive Date: 20230216
  Receipt Date: 20230420
  Transmission Date: 20230722
  Serious: No
  Sender: FDA-Public Use
  Company Number: US-PFIZER INC-202300066536

PATIENT
  Age: 37 Year
  Sex: Female

DRUGS (1)
  1. NURTEC ODT [Suspect]
     Active Substance: RIMEGEPANT SULFATE
     Indication: Migraine
     Dosage: DISSOLVE IT ON OR UNDER QD AS ACUTE TREATMENT, PRN
     Route: 048
     Dates: start: 202211

REACTIONS (1)
  - Ear pain [Unknown]

NARRATIVE: CASE EVENT DATE: 20230210
